FAERS Safety Report 13357485 (Version 3)
Quarter: 2017Q2

REPORT INFORMATION
  Report Type: Report from Study
  Country: NL (occurrence: NL)
  Receive Date: 20170322
  Receipt Date: 20170614
  Transmission Date: 20170830
  Serious: Yes (Hospitalization, Other)
  Sender: FDA-Public Use
  Company Number: NL-AMGEN-NLDSL2017041417

PATIENT
  Age: 80 Year
  Sex: Male

DRUGS (1)
  1. XGEVA [Suspect]
     Active Substance: DENOSUMAB
     Indication: PROPHYLAXIS
     Dosage: 120 MG(1.70ML), Q4WK
     Route: 058

REACTIONS (3)
  - Fluid retention [Unknown]
  - Oedematous kidney [Unknown]
  - Renal failure [Recovering/Resolving]

NARRATIVE: CASE EVENT DATE: 20170314
